FAERS Safety Report 24592171 (Version 13)
Quarter: 2025Q1

REPORT INFORMATION
  Report Type: Spontaneous
  Country: US (occurrence: US)
  Receive Date: 20241108
  Receipt Date: 20250322
  Transmission Date: 20250408
  Serious: Yes (Other)
  Sender: UNITED THERAPEUTICS
  Company Number: US-UNITED THERAPEUTICS-UNT-2024-034290

PATIENT
  Sex: Female
  Weight: 43.991 kg

DRUGS (28)
  1. REMODULIN [Suspect]
     Active Substance: TREPROSTINIL
     Indication: Pulmonary arterial hypertension
  2. REMODULIN [Suspect]
     Active Substance: TREPROSTINIL
  3. REMODULIN [Suspect]
     Active Substance: TREPROSTINIL
  4. REMODULIN [Suspect]
     Active Substance: TREPROSTINIL
  5. REMODULIN [Suspect]
     Active Substance: TREPROSTINIL
  6. REMODULIN [Suspect]
     Active Substance: TREPROSTINIL
     Indication: Pulmonary arterial hypertension
  7. REMODULIN [Suspect]
     Active Substance: TREPROSTINIL
  8. REMODULIN [Suspect]
     Active Substance: TREPROSTINIL
  9. REMODULIN [Suspect]
     Active Substance: TREPROSTINIL
  10. REMODULIN [Suspect]
     Active Substance: TREPROSTINIL
     Indication: Pulmonary arterial hypertension
  11. REMODULIN [Suspect]
     Active Substance: TREPROSTINIL
  12. REMODULIN [Suspect]
     Active Substance: TREPROSTINIL
  13. MORPHINE [Suspect]
     Active Substance: MORPHINE
     Indication: Headache
  14. MORPHINE [Suspect]
     Active Substance: MORPHINE
     Indication: Pain
  15. MORPHINE [Suspect]
     Active Substance: MORPHINE
     Indication: Infusion site pain
  16. UPTRAVI [Concomitant]
     Active Substance: SELEXIPAG
     Indication: Pulmonary arterial hypertension
     Dosage: 1600 ?G, BID
     Dates: start: 202107
  17. UPTRAVI [Concomitant]
     Active Substance: SELEXIPAG
     Dosage: 400 ?G, BID
  18. SOTATERCEPT [Concomitant]
     Active Substance: SOTATERCEPT
     Indication: Pulmonary arterial hypertension
     Dosage: 0.6 ML, Q3WK
     Dates: start: 202406
  19. SOTATERCEPT [Concomitant]
     Active Substance: SOTATERCEPT
  20. LETAIRIS [Concomitant]
     Active Substance: AMBRISENTAN
     Indication: Pulmonary arterial hypertension
     Dosage: 10 MG, QD
     Dates: start: 202404
  21. LETAIRIS [Concomitant]
     Active Substance: AMBRISENTAN
     Dosage: 10 MG, QD
     Dates: start: 20180615
  22. TADALAFIL [Concomitant]
     Active Substance: TADALAFIL
     Indication: Product used for unknown indication
  23. ADEMPAS [Concomitant]
     Active Substance: RIOCIGUAT
     Indication: Product used for unknown indication
  24. LIDOCAINE\PRILOCAINE [Concomitant]
     Active Substance: LIDOCAINE\PRILOCAINE
     Indication: Infusion site pain
  25. OXYGEN [Concomitant]
     Active Substance: OXYGEN
     Indication: Dyspnoea
  26. OXYGEN [Concomitant]
     Active Substance: OXYGEN
     Indication: Dizziness
  27. TYLENOL [Concomitant]
     Active Substance: ACETAMINOPHEN
     Indication: Arthritis
  28. TYLENOL [Concomitant]
     Active Substance: ACETAMINOPHEN
     Indication: Myalgia

REACTIONS (43)
  - Pulmonary arterial hypertension [Unknown]
  - Dyspnoea at rest [Not Recovered/Not Resolved]
  - Hypotension [Not Recovered/Not Resolved]
  - Headache [Not Recovered/Not Resolved]
  - Pain [Not Recovered/Not Resolved]
  - Nausea [Not Recovered/Not Resolved]
  - Fatigue [Not Recovered/Not Resolved]
  - Diarrhoea [Not Recovered/Not Resolved]
  - Urine output decreased [Unknown]
  - Myoclonus [Unknown]
  - Confusional state [Recovered/Resolved]
  - Weight decreased [Unknown]
  - Stress [Recovering/Resolving]
  - Infusion site pain [Recovering/Resolving]
  - Infusion site swelling [Unknown]
  - Dizziness postural [Not Recovered/Not Resolved]
  - Dizziness exertional [Not Recovered/Not Resolved]
  - Dry skin [Unknown]
  - Skin exfoliation [Unknown]
  - Infusion site pruritus [Unknown]
  - Flushing [Unknown]
  - Erythema [Unknown]
  - Rash macular [Unknown]
  - Infusion site erythema [Unknown]
  - Dizziness [Not Recovered/Not Resolved]
  - Nerve compression [Not Recovered/Not Resolved]
  - Hypoaesthesia [Unknown]
  - Infusion site bruising [Recovering/Resolving]
  - Therapy partial responder [Unknown]
  - Purulent discharge [Unknown]
  - Infusion site discharge [Unknown]
  - Wound [Unknown]
  - Skin discolouration [Unknown]
  - Varicose vein [Unknown]
  - Unintentional medical device removal [Unknown]
  - Pain in extremity [Unknown]
  - Myalgia [Not Recovered/Not Resolved]
  - Arthritis [Unknown]
  - Burning sensation [Unknown]
  - Peripheral swelling [Unknown]
  - Loss of personal independence in daily activities [Unknown]
  - Muscle spasms [Not Recovered/Not Resolved]
  - Chest pain [Not Recovered/Not Resolved]

NARRATIVE: CASE EVENT DATE: 20240101
